FAERS Safety Report 8502374-9 (Version None)
Quarter: 2012Q3

REPORT INFORMATION
  Report Type: 
  Country: None (occurrence: None)
  Receive Date: 20120711
  Receipt Date: 20120706
  Transmission Date: 20120928
  Serious: Yes (Hospitalization, Other)
  Sender: FDA-Public Use
  Company Number: US-BAYER-201039955NA

PATIENT
  Age: 14 Year
  Sex: Female
  Weight: 83.9 kg

DRUGS (6)
  1. YAZ [Suspect]
     Indication: ACNE
     Dosage: UNK
     Dates: start: 20081001, end: 20090101
  2. LEVSIN PB [Concomitant]
     Dosage: UNK UNK, TID
     Route: 048
  3. HYOSCYAMINE [Concomitant]
     Dosage: 0.125 MG, UNK
     Route: 048
  4. YAZ [Suspect]
     Indication: OVARIAN CYST
  5. ALBUTEROL [Concomitant]
     Dosage: 2 PUFF(S), PRN
     Route: 055
  6. FLOVENT [Concomitant]
     Dosage: 2 PUFF(S), PRN
     Route: 055

REACTIONS (4)
  - PAIN [None]
  - CHOLECYSTITIS CHRONIC [None]
  - GALLBLADDER DISORDER [None]
  - ABDOMINAL PAIN [None]
